FAERS Safety Report 10592467 (Version 1)
Quarter: 2014Q4

REPORT INFORMATION
  Report Type: Spontaneous
  Country: CA (occurrence: None)
  Receive Date: 20141117
  Receipt Date: 20141117
  Transmission Date: 20150529
  Serious: Yes (Hospitalization)
  Sender: FDA-Public Use
  Company Number: AMAG201400417

PATIENT
  Age: 78 Year
  Sex: Female

DRUGS (10)
  1. JANUVIA [Concomitant]
     Active Substance: SITAGLIPTIN PHOSPHATE
  2. ACEBUTOLOL [Concomitant]
     Active Substance: ACEBUTOLOL
  3. ASA [Concomitant]
     Active Substance: ASPIRIN
  4. IRBESARTAN. [Concomitant]
     Active Substance: IRBESARTAN
  5. METFORMIN [Concomitant]
     Active Substance: METFORMIN HYDROCHLORIDE
  6. TERAZOSIN [Concomitant]
     Active Substance: TERAZOSIN\TERAZOSIN HYDROCHLORIDE
  7. ELTROXIN (LEVOTHYROXINE SODIUM) [Concomitant]
  8. FELODIPINE. [Concomitant]
     Active Substance: FELODIPINE
  9. RANITIDINE [Concomitant]
     Active Substance: RANITIDINE\RANITIDINE HYDROCHLORIDE
  10. FERAHEME [Suspect]
     Active Substance: FERUMOXYTOL NON-STOICHIOMETRIC MAGNETITE
     Dosage: 510MG IN 50ML, SINGLE INFUSION

REACTIONS (6)
  - Pain in extremity [None]
  - Chest pain [None]
  - Dyspnoea [None]
  - Blood pressure systolic decreased [None]
  - Cyanosis [None]
  - Flank pain [None]
